FAERS Safety Report 8390464-3 (Version None)
Quarter: 2012Q2

REPORT INFORMATION
  Report Type: 
  Country: None (occurrence: None)
  Receive Date: 20120529
  Receipt Date: 20120516
  Transmission Date: 20120825
  Serious: Yes (Other)
  Sender: FDA-Public Use
  Company Number: US-JNJFOC-20120517160

PATIENT
  Sex: Female
  Weight: 52.62 kg

DRUGS (1)
  1. REMICADE [Suspect]
     Indication: RHEUMATOID ARTHRITIS
     Route: 042
     Dates: start: 20090101

REACTIONS (3)
  - CYSTITIS NONINFECTIVE [None]
  - MALAISE [None]
  - RESPIRATORY DISORDER [None]
